FAERS Safety Report 25426433 (Version 1)
Quarter: 2025Q2

REPORT INFORMATION
  Report Type: Spontaneous
  Country: US (occurrence: US)
  Receive Date: 20250612
  Receipt Date: 20250612
  Transmission Date: 20250717
  Serious: No
  Sender: ELI LILLY AND COMPANY
  Company Number: US-ELI_LILLY_AND_COMPANY-US202506004458

PATIENT
  Age: 35 Year

DRUGS (4)
  1. MOUNJARO [Suspect]
     Active Substance: TIRZEPATIDE
     Indication: Hypothyroidism
     Route: 058
     Dates: start: 20250207
  2. MOUNJARO [Suspect]
     Active Substance: TIRZEPATIDE
     Indication: Hypothyroidism
     Route: 058
     Dates: start: 20250207
  3. MOUNJARO [Suspect]
     Active Substance: TIRZEPATIDE
     Indication: Hypothyroidism
     Route: 058
     Dates: start: 20250207
  4. MOUNJARO [Suspect]
     Active Substance: TIRZEPATIDE
     Indication: Hypothyroidism
     Route: 058
     Dates: start: 20250207

REACTIONS (2)
  - Off label use [Not Recovered/Not Resolved]
  - Incorrect dose administered [Not Recovered/Not Resolved]

NARRATIVE: CASE EVENT DATE: 20250207
